FAERS Safety Report 8660043 (Version 3)
Quarter: 2014Q1

REPORT INFORMATION
  Report Type: Spontaneous
  Country: US (occurrence: US)
  Receive Date: 20120711
  Receipt Date: 20140107
  Transmission Date: 20141002
  Serious: Yes (Other)
  Sender: FDA-Public Use
  Company Number: US-PFIZER INC-2012163962

PATIENT
  Age: 40 Year
  Sex: Male

DRUGS (4)
  1. CHANTIX [Suspect]
     Dosage: UNK
     Dates: start: 20070529
  2. CHANTIX [Suspect]
     Dosage: UNK
     Dates: start: 20070701, end: 20070825
  3. BENZOYL PEROXIDE WASH [Concomitant]
     Dosage: 5%
     Dates: start: 20070814
  4. HYDROCORTISONE/MENTHOL [Concomitant]
     Dosage: UNK
     Dates: start: 20070814

REACTIONS (3)
  - Road traffic accident [Unknown]
  - Amnesia [Unknown]
  - Mental disorder [Unknown]
